FAERS Safety Report 6762438-7 (Version None)
Quarter: 2010Q2

REPORT INFORMATION
  Report Type: 
  Country: None (occurrence: None)
  Receive Date: 20100609
  Receipt Date: 20100528
  Transmission Date: 20101027
  Serious: Yes (Hospitalization)
  Sender: FDA-Public Use
  Company Number: FR-WYE-H15447110

PATIENT
  Sex: Male

DRUGS (7)
  1. INIPOMP [Suspect]
     Route: 048
     Dates: start: 20100202
  2. ALLOPURINOL [Suspect]
     Dosage: 100 MG, 1 DOSAGE FORM, FREQUENCY UNSPECIFIED
     Route: 048
  3. LORAZEPAM [Concomitant]
     Dosage: 1 MG, 1 DOSAGE FORM, FREQUENCY UNSPECIFIED
     Route: 065
  4. FORLAX [Concomitant]
     Dosage: 2 DOSAGE FORMS, FREQUENCY UNSPECIFIED
     Route: 065
  5. KERLONE [Concomitant]
     Dosage: 20 MG, 1 DOSAGE FORM, FREQUENCY UNSPECIFIED
     Route: 065
  6. COUMADIN [Suspect]
     Dosage: 2 MG, FREQUENCY UNSPECIFIED
     Route: 048
     Dates: end: 20100208
  7. ZOLOFT [Suspect]
     Dosage: 50 MG, 1 DOSAGE FORM, FREQUENCY UNSPECIFIED
     Route: 048
     Dates: start: 20100202

REACTIONS (2)
  - GASTROINTESTINAL HAEMORRHAGE [None]
  - VARICES OESOPHAGEAL [None]
